FAERS Safety Report 6172559-8 (Version None)
Quarter: 2009Q2

REPORT INFORMATION
  Report Type: 
  Country: None (occurrence: None)
  Receive Date: 20090428
  Receipt Date: 20090421
  Transmission Date: 20091009
  Serious: Yes (Death, Hospitalization)
  Sender: FDA-Public Use
  Company Number: 2009SP007398

PATIENT
  Age: 51 Year
  Sex: Male

DRUGS (11)
  1. TEMODAR [Suspect]
     Indication: GLIOBLASTOMA
     Dosage: PO
     Route: 048
     Dates: end: 20090301
  2. NORVASC [Concomitant]
  3. DECADRON [Concomitant]
  4. NEXIUM [Concomitant]
  5. LAMICTAL [Concomitant]
  6. KEPPRA [Concomitant]
  7. LOPRESSOR [Concomitant]
  8. SEROQUEL [Concomitant]
  9. ZOLOFT [Concomitant]
  10. TYLENOL [Concomitant]
  11. HALDOL [Concomitant]

REACTIONS (9)
  - ABNORMAL BEHAVIOUR [None]
  - AGITATION [None]
  - APHASIA [None]
  - BRAIN NEOPLASM MALIGNANT [None]
  - BRAIN OEDEMA [None]
  - DISEASE PROGRESSION [None]
  - GLIOBLASTOMA [None]
  - PARANOIA [None]
  - PLATELET COUNT DECREASED [None]
